FAERS Safety Report 19271888 (Version 2)
Quarter: 2024Q1

REPORT INFORMATION
  Report Type: Spontaneous
  Country: US (occurrence: US)
  Receive Date: 20210519
  Receipt Date: 20240201
  Transmission Date: 20240409
  Serious: No
  Sender: FDA-Public Use
  Company Number: US-NOVEN PHARMACEUTICALS, INC.-2020US006118

PATIENT
  Age: 15 Year
  Sex: Female
  Weight: 61.224 kg

DRUGS (1)
  1. DAYTRANA [Suspect]
     Active Substance: METHYLPHENIDATE
     Indication: Attention deficit hyperactivity disorder
     Dosage: 30MG/9 HOURS, FREQUENCY UNKNOWN
     Route: 062
     Dates: start: 20201011

REACTIONS (8)
  - Application site erythema [Unknown]
  - Application site pain [Unknown]
  - Accidental exposure to product [Unknown]
  - Accidental exposure to product [Unknown]
  - Product administration error [Not Recovered/Not Resolved]
  - Product adhesion issue [Not Recovered/Not Resolved]
  - Device difficult to use [Not Recovered/Not Resolved]
  - Device adhesion issue [Not Recovered/Not Resolved]

NARRATIVE: CASE EVENT DATE: 20201011
